FAERS Safety Report 6277525-X (Version None)
Quarter: 2009Q3

REPORT INFORMATION
  Report Type: 
  Country: None (occurrence: None)
  Receive Date: 20090722
  Receipt Date: 20090710
  Transmission Date: 20100115
  Serious: Yes (Death, Hospitalization, Other)
  Sender: FDA-Public Use
  Company Number: US-PFIZER INC-2009220390

PATIENT
  Sex: Male

DRUGS (1)
  1. SUTENT [Suspect]
     Indication: METASTATIC RENAL CELL CARCINOMA
     Dosage: 50 MG, 1X/DAY, Q 42 DAYS
     Dates: start: 20090508, end: 20090707

REACTIONS (4)
  - DEATH [None]
  - DEHYDRATION [None]
  - HAEMATEMESIS [None]
  - WEIGHT DECREASED [None]
